FAERS Safety Report 4376279-1 (Version None)
Quarter: 2004Q2

REPORT INFORMATION
  Report Type: 
  Country: None (occurrence: None)
  Receive Date: 20040608
  Receipt Date: 20030219
  Transmission Date: 20050107
  Serious: Yes (Other)
  Sender: FDA-Public Use
  Company Number: 200310588BCC

PATIENT
  Age: 63 Year
  Sex: Male
  Weight: 90.7194 kg

DRUGS (5)
  1. ALEVE [Suspect]
     Indication: ARTHRITIS
     Dosage: 440 MG, QD, ORAL
     Route: 048
     Dates: start: 20021215, end: 20030210
  2. COREG [Concomitant]
  3. ALTACE [Concomitant]
  4. INSULIN [Concomitant]
  5. LASIX [Concomitant]

REACTIONS (1)
  - RENAL DISORDER [None]
